FAERS Safety Report 9645040 (Version 4)
Quarter: 2014Q2

REPORT INFORMATION
  Report Type: Spontaneous
  Country: DE (occurrence: DE)
  Receive Date: 20131025
  Receipt Date: 20140421
  Transmission Date: 20141212
  Serious: Yes (Hospitalization, Other)
  Sender: FDA-Public Use
  Company Number: DE-JNJFOC-20131013624

PATIENT
  Age: 72 Year
  Sex: Male
  Weight: 108 kg

DRUGS (4)
  1. XARELTO [Suspect]
     Indication: THROMBOSIS PROPHYLAXIS
     Route: 048
     Dates: start: 20120919, end: 20120921
  2. XARELTO [Suspect]
     Indication: THROMBOSIS PROPHYLAXIS
     Route: 048
     Dates: start: 20120827, end: 20120918
  3. XARELTO [Suspect]
     Indication: DEEP VEIN THROMBOSIS
     Route: 048
     Dates: start: 20120919, end: 20120921
  4. XARELTO [Suspect]
     Indication: DEEP VEIN THROMBOSIS
     Route: 048
     Dates: start: 20120827, end: 20120918

REACTIONS (7)
  - Renal failure [Unknown]
  - Granulomatosis with polyangiitis [Unknown]
  - Antibody test positive [Unknown]
  - Pneumonia [Unknown]
  - Cystitis [Unknown]
  - Drug ineffective [Unknown]
  - Thrombosis [Recovered/Resolved]
